FAERS Safety Report 17517743 (Version 2)
Quarter: 2020Q1

REPORT INFORMATION
  Report Type: Spontaneous
  Country: DK (occurrence: DK)
  Receive Date: 20200309
  Receipt Date: 20200318
  Transmission Date: 20200409
  Serious: Yes (Disabling)
  Sender: FDA-Public Use
  Company Number: DK-OTSUKA-2020_006587

PATIENT
  Age: 28 Year
  Sex: Male

DRUGS (1)
  1. ABILIFY [Suspect]
     Active Substance: ARIPIPRAZOLE
     Indication: SCHIZOPHRENIA
     Dosage: UNK UNK, QD (5-10 MG DAILY)
     Route: 065
     Dates: end: 201911

REACTIONS (5)
  - CYP2D6 polymorphism [Unknown]
  - Aggression [Not Recovered/Not Resolved]
  - Self-injurious ideation [Not Recovered/Not Resolved]
  - Underdose [Unknown]
  - Mutism [Not Recovered/Not Resolved]

NARRATIVE: CASE EVENT DATE: 2019
